FAERS Safety Report 8585410-3 (Version None)
Quarter: 2012Q3

REPORT INFORMATION
  Report Type: 
  Country: None (occurrence: None)
  Receive Date: 20120810
  Receipt Date: 20120727
  Transmission Date: 20120928
  Serious: No
  Sender: FDA-Public Use
  Company Number: US-009507513-2012SP036905

PATIENT

DRUGS (4)
  1. LISINOPRIL [Concomitant]
  2. LIPITOR [Concomitant]
  3. ASMANEX TWISTHALER [Suspect]
     Indication: ASTHMA
     Dosage: INHALE 1 TO 2 INHALATIONS
     Route: 055
     Dates: start: 20110203
  4. IMITREX [Concomitant]

REACTIONS (1)
  - DRUG INEFFECTIVE [None]
